FAERS Safety Report 7178114-5 (Version None)
Quarter: 2010Q4

REPORT INFORMATION
  Report Type: 
  Country: None (occurrence: None)
  Receive Date: 20101220
  Receipt Date: 20101209
  Transmission Date: 20110411
  Serious: Yes (Congenital Anomaly)
  Sender: FDA-Public Use
  Company Number: A0900384A

PATIENT
  Sex: Female
  Weight: 0.5 kg

DRUGS (10)
  1. PAXIL [Suspect]
  2. LABETALOL HCL [Concomitant]
  3. SEROQUEL [Concomitant]
  4. VALIUM [Concomitant]
  5. PRENATAL VITAMINS [Concomitant]
  6. COLACE [Concomitant]
  7. IRON [Concomitant]
  8. ALLEGRA [Concomitant]
  9. NASONEX [Concomitant]
  10. ALBUTEROL [Concomitant]

REACTIONS (6)
  - DRUG EXPOSURE DURING PREGNANCY [None]
  - FALLOT'S TETRALOGY [None]
  - FOETAL GROWTH RESTRICTION [None]
  - LUNG DISORDER [None]
  - STILLBIRTH [None]
  - VENTRICULAR SEPTAL DEFECT [None]
